FAERS Safety Report 17119881 (Version 1)
Quarter: 2019Q4

REPORT INFORMATION
  Report Type: Spontaneous
  Country: US (occurrence: US)
  Receive Date: 20191113
  Receipt Date: 20191113
  Transmission Date: 20200122
  Serious: Yes (Hospitalization)
  Sender: FDA-Public Use
  Company Number: None

PATIENT
  Age: 22 Year
  Sex: Male

DRUGS (2)
  1. STELARA [Suspect]
     Active Substance: USTEKINUMAB
     Indication: CROHN^S DISEASE
     Dosage: ?          OTHER FREQUENCY:EVERY 1 X  8 WEEKS;?
     Route: 058
     Dates: start: 20191001
  2. CEPHALEXIN CAP 500MG [Concomitant]

REACTIONS (1)
  - Post procedural fistula [None]

NARRATIVE: CASE EVENT DATE: 20191108
